FAERS Safety Report 4744287-4 (Version None)
Quarter: 2005Q3

REPORT INFORMATION
  Report Type: 
  Country: None (occurrence: None)
  Receive Date: 20050812
  Receipt Date: 20050309
  Transmission Date: 20060218
  Serious: Yes (Hospitalization, Disabling, Other)
  Sender: FDA-Public Use
  Company Number: US-MERCK-0503USA01683

PATIENT
  Age: 49 Year
  Sex: Female
  Weight: 73 kg

DRUGS (15)
  1. VIOXX [Suspect]
     Indication: BACK PAIN
     Route: 048
     Dates: end: 20020430
  2. VIOXX [Suspect]
     Route: 048
     Dates: start: 20020918
  3. VIOXX [Suspect]
     Route: 048
     Dates: start: 20030601, end: 20030901
  4. VIOXX [Suspect]
     Indication: ABDOMINAL PAIN
     Route: 048
     Dates: end: 20020430
  5. VIOXX [Suspect]
     Route: 048
     Dates: start: 20020918
  6. VIOXX [Suspect]
     Route: 048
     Dates: start: 20030601, end: 20030901
  7. VALIUM [Concomitant]
     Route: 065
  8. NEURONTIN [Concomitant]
     Route: 065
  9. MECLIZINE [Concomitant]
     Route: 065
  10. HYDRODIURIL [Concomitant]
     Route: 048
  11. PREDNISONE [Concomitant]
     Route: 065
  12. PRINIVIL [Concomitant]
     Route: 048
  13. KEFLEX [Concomitant]
     Route: 065
  14. LIPITOR [Concomitant]
     Route: 065
  15. EFFEXOR [Concomitant]
     Route: 065

REACTIONS (27)
  - ABDOMINAL PAIN LOWER [None]
  - ARTHRALGIA [None]
  - BACK PAIN [None]
  - CEREBROVASCULAR ACCIDENT [None]
  - COMA [None]
  - CONVULSION [None]
  - DEPRESSION [None]
  - DIARRHOEA [None]
  - FACE OEDEMA [None]
  - FAECES DISCOLOURED [None]
  - FATIGUE [None]
  - FLUID RETENTION [None]
  - HEADACHE [None]
  - HERNIA [None]
  - HYPERTENSION [None]
  - NAUSEA [None]
  - OEDEMA [None]
  - OEDEMA PERIPHERAL [None]
  - ORAL SOFT TISSUE DISORDER [None]
  - OVERDOSE [None]
  - PAIN [None]
  - SOMNOLENCE [None]
  - SUICIDE ATTEMPT [None]
  - SWELLING [None]
  - UPPER RESPIRATORY TRACT INFECTION [None]
  - VOMITING [None]
  - WEIGHT INCREASED [None]
